FAERS Safety Report 14019003 (Version 1)
Quarter: 2017Q3

REPORT INFORMATION
  Report Type: Spontaneous
  Country: DE (occurrence: DE)
  Receive Date: 20170928
  Receipt Date: 20170928
  Transmission Date: 20171128
  Serious: Yes (Life-Threatening, Hospitalization, Other)
  Sender: FDA-Public Use
  Company Number: DE-AUROBINDO-AUR-APL-2017-40742

PATIENT
  Age: 79 Year
  Sex: Female
  Weight: 75 kg

DRUGS (6)
  1. TRAMADOL. [Suspect]
     Active Substance: TRAMADOL
     Indication: HEADACHE
  2. BROMAZEPAM [Concomitant]
     Active Substance: BROMAZEPAM
     Dosage: 0-0-0-?
  3. RAMIPRIL. [Suspect]
     Active Substance: RAMIPRIL
     Dosage: ?-0-0
  4. OMEPRAZOLE. [Suspect]
     Active Substance: OMEPRAZOLE
     Indication: PRODUCT USED FOR UNKNOWN INDICATION
     Dosage: 1-0-0
  5. ACETYLSALICYLIC ACID [Concomitant]
     Active Substance: ASPIRIN
     Indication: PRODUCT USED FOR UNKNOWN INDICATION
     Dosage: 1-0-0
  6. BISOPROLOL [Suspect]
     Active Substance: BISOPROLOL
     Indication: PRODUCT USED FOR UNKNOWN INDICATION
     Dosage: ?-0-0

REACTIONS (2)
  - Hypoglycaemia [Recovered/Resolved]
  - Hypotension [Recovered/Resolved]
